FAERS Safety Report 6511294 (Version 2)
Quarter: 2020Q3

REPORT INFORMATION
  Report Type: Report from Study
  Country: JP (occurrence: JP)
  Receive Date: 20071220
  Receipt Date: 20080408
  Transmission Date: 20201104
  Serious: Yes (Death, Life-Threatening, Other)
  Sender: FDA-Public Use
  Company Number: JP-JNJFOC-20070901107

PATIENT
  Age: 75 Year
  Sex: Male

DRUGS (20)
  1. KATIV?N [Concomitant]
     Route: 048
  2. ALDACTONE [Concomitant]
     Active Substance: SPIRONOLACTONE
     Route: 048
  3. CODEINE SULFATE. [Concomitant]
     Active Substance: CODEINE SULFATE
     Indication: COUGH
     Route: 048
  4. DORIBAX [Suspect]
     Active Substance: DORIPENEM
     Route: 041
  5. LEVOFLOXACIN. [Concomitant]
     Active Substance: LEVOFLOXACIN
     Indication: LUNG ABSCESS
     Route: 048
  6. ZYVOX [Suspect]
     Active Substance: LINEZOLID
     Indication: WHITE BLOOD CELL COUNT INCREASED
     Route: 065
  7. LASIX [Concomitant]
     Active Substance: FUROSEMIDE
     Route: 048
  8. HEPARIN SODIUM. [Concomitant]
     Active Substance: HEPARIN SODIUM
     Indication: COMPLICATION ASSOCIATED WITH DEVICE
     Route: 042
  9. ZYVOX [Suspect]
     Active Substance: LINEZOLID
     Indication: SUPERINFECTION
     Route: 065
  10. LIVACT [Concomitant]
     Route: 048
  11. LASIX [Concomitant]
     Active Substance: FUROSEMIDE
     Route: 048
  12. LASIX [Concomitant]
     Active Substance: FUROSEMIDE
     Route: 048
  13. ASPARA K [Concomitant]
     Route: 048
  14. DORIBAX [Suspect]
     Active Substance: DORIPENEM
     Route: 041
  15. DORIBAX [Suspect]
     Active Substance: DORIPENEM
     Indication: LUNG ABSCESS
     Route: 041
  16. BENZBROMARONE [Concomitant]
     Active Substance: BENZBROMARONE
     Route: 048
  17. LOXONIN [Concomitant]
     Active Substance: LOXOPROFEN SODIUM
     Indication: PYREXIA
     Route: 048
  18. ZYVOX [Suspect]
     Active Substance: LINEZOLID
     Indication: STAPHYLOCOCCAL INFECTION
     Route: 065
  19. ZYVOX [Suspect]
     Active Substance: LINEZOLID
     Indication: C-REACTIVE PROTEIN INCREASED
     Route: 065
  20. UNSPECIFIED INGREDIENT [Concomitant]
     Active Substance: UNSPECIFIED INGREDIENT
     Route: 048

REACTIONS (6)
  - Blood creatinine increased [Unknown]
  - Lung abscess [Fatal]
  - Pneumonia staphylococcal [Recovered/Resolved]
  - Blood urea increased [Unknown]
  - Superinfection [Recovered/Resolved]
  - Drug ineffective [Unknown]

NARRATIVE: CASE EVENT DATE: 20070130
